FAERS Safety Report 8875395 (Version 1)
Quarter: 2012Q4

REPORT INFORMATION
  Report Type: Report from Study
  Country: ES (occurrence: ES)
  Receive Date: 20121029
  Receipt Date: 20121029
  Transmission Date: 20130627
  Serious: Yes (Death)
  Sender: FDA-Public Use
  Company Number: ES-SANOFI-AVENTIS-2012SA078444

PATIENT

DRUGS (3)
  1. OXALIPLATIN [Suspect]
     Indication: COLORECTAL CANCER
     Dosage: 2 hour infusion
     Route: 065
  2. RALTITREXED [Suspect]
     Indication: COLORECTAL CANCER
     Dosage: on day 1
     Route: 065
  3. ANTIEMETICS AND ANTINAUSEANTS [Concomitant]
     Indication: PROPHYLAXIS

REACTIONS (1)
  - Septic shock [Fatal]
